FAERS Safety Report 18863636 (Version 1)
Quarter: 2021Q1

REPORT INFORMATION
  Report Type: Other
  Country: CA (occurrence: CA)
  Receive Date: 20210209
  Receipt Date: 20210209
  Transmission Date: 20210420
  Serious: Yes (Hospitalization, Other)
  Sender: FDA-Public Use
  Company Number: CA-CELLTRION INC.-2021CA001329

PATIENT

DRUGS (5)
  1. CELEBREX [Suspect]
     Active Substance: CELECOXIB
     Indication: RHEUMATOID ARTHRITIS
     Route: 065
  2. RITUXIMAB (UNKNOWN) [Suspect]
     Active Substance: RITUXIMAB
     Indication: RHEUMATOID ARTHRITIS
     Route: 042
  3. ENBREL [Suspect]
     Active Substance: ETANERCEPT
     Indication: RHEUMATOID ARTHRITIS
     Route: 065
  4. LEFLUNOMIDE. [Suspect]
     Active Substance: LEFLUNOMIDE
     Indication: RHEUMATOID ARTHRITIS
     Route: 065
  5. METHOTREXATE. [Suspect]
     Active Substance: METHOTREXATE
     Indication: RHEUMATOID ARTHRITIS
     Route: 065

REACTIONS (8)
  - Fine motor skill dysfunction [Unknown]
  - Disease recurrence [Unknown]
  - Rheumatoid arthritis [Unknown]
  - Pain in extremity [Unknown]
  - Condition aggravated [Unknown]
  - Peripheral swelling [Unknown]
  - Mobility decreased [Unknown]
  - Arthralgia [Unknown]
